FAERS Safety Report 18744651 (Version 3)
Quarter: 2021Q3

REPORT INFORMATION
  Report Type: Other
  Country: JP (occurrence: JP)
  Receive Date: 20210115
  Receipt Date: 20210907
  Transmission Date: 20211014
  Serious: Yes (Hospitalization)
  Sender: FDA-Public Use
  Company Number: JP-ROCHE-2749735

PATIENT
  Age: 70 Year
  Sex: Female
  Weight: 44.4 kg

DRUGS (3)
  1. AVASTIN [Suspect]
     Active Substance: BEVACIZUMAB
     Route: 041
     Dates: start: 202012
  2. AVASTIN [Suspect]
     Active Substance: BEVACIZUMAB
     Indication: HEPATOCELLULAR CARCINOMA
     Dosage: UNCERTAIN DOSAGE AND SINGLE DOSE ADMINISTRATION
     Route: 041
     Dates: start: 20201111, end: 20201111
  3. TECENTRIQ [Suspect]
     Active Substance: ATEZOLIZUMAB
     Indication: HEPATOCELLULAR CARCINOMA
     Dosage: SINGLE DOSE ADMINISTRATION
     Route: 041
     Dates: start: 20201111, end: 20201111

REACTIONS (2)
  - Myocarditis [Recovered/Resolved]
  - Cardiac failure acute [Recovered/Resolved]

NARRATIVE: CASE EVENT DATE: 20201115
